FAERS Safety Report 7128322-4 (Version None)
Quarter: 2010Q4

REPORT INFORMATION
  Report Type: 
  Country: None (occurrence: None)
  Receive Date: 20101130
  Receipt Date: 20101124
  Transmission Date: 20110411
  Serious: Yes (Death, Other)
  Sender: FDA-Public Use
  Company Number: PHHY2008GB32347

PATIENT
  Sex: Male
  Weight: 81 kg

DRUGS (13)
  1. CLOZARIL [Suspect]
     Indication: SCHIZOPHRENIA
     Dosage: 300 MG, QD
     Route: 048
     Dates: start: 20070824
  2. CLOZARIL [Suspect]
     Dosage: 350 MG, QD
     Route: 048
     Dates: start: 20080220
  3. CLOZARIL [Suspect]
     Dosage: 400 MG, QD
     Route: 048
     Dates: start: 20080306
  4. CLOZARIL [Suspect]
     Dosage: 450 MG, QD
     Route: 048
     Dates: start: 20080612
  5. CLOZARIL [Suspect]
     Dosage: 500 MG, QD
     Route: 048
     Dates: start: 20080709
  6. CLOZARIL [Suspect]
     Dosage: 550 MG, QD
     Route: 048
     Dates: start: 20080730
  7. CLOZARIL [Suspect]
     Dosage: 600 MG, QD
     Route: 048
     Dates: start: 20080806
  8. CLOZARIL [Suspect]
     Dosage: 650 MG, QD
     Route: 048
     Dates: start: 20080820
  9. CLOZARIL [Suspect]
     Dosage: 700 MG, QD
     Route: 048
     Dates: start: 20080903
  10. CLOZARIL [Suspect]
     Dosage: 750 MG, QD
     Route: 048
     Dates: start: 20080918
  11. CLOZARIL [Suspect]
     Dosage: 800 MG, QD
     Route: 048
     Dates: start: 20081001
  12. DULOXETINE HYDROCHLORIDE [Concomitant]
     Indication: DEPRESSION
     Dosage: 60 MG/DAY
     Route: 048
  13. NALTREXONE HYDROCHLORIDE [Concomitant]
     Indication: DRUG DEPENDENCE
     Dosage: 50 MG/DAY
     Route: 048

REACTIONS (16)
  - ANTIPSYCHOTIC DRUG LEVEL INCREASED [None]
  - ARTERIOSCLEROSIS CORONARY ARTERY [None]
  - CARDIAC ARREST [None]
  - CARDIOMEGALY [None]
  - DUODENITIS [None]
  - ENDOCARDIAL FIBROSIS [None]
  - GASTRITIS EROSIVE [None]
  - HAEMORRHAGE [None]
  - HEPATIC CONGESTION [None]
  - LYMPHOCYTE COUNT INCREASED [None]
  - MITRAL VALVE DISEASE [None]
  - PETECHIAE [None]
  - PULMONARY CONGESTION [None]
  - PULMONARY OEDEMA [None]
  - SPLEEN CONGESTION [None]
  - TRICUSPID VALVE DISEASE [None]
